FAERS Safety Report 17731390 (Version 2)
Quarter: 2020Q3

REPORT INFORMATION
  Report Type: Spontaneous
  Country: AU (occurrence: AU)
  Receive Date: 20200430
  Receipt Date: 20200805
  Transmission Date: 20201102
  Serious: Yes (Hospitalization)
  Sender: FDA-Public Use
  Company Number: AU-ROCHE-2590165

PATIENT
  Age: 73 Year
  Sex: Female

DRUGS (2)
  1. COBIMETINIB. [Suspect]
     Active Substance: COBIMETINIB
     Indication: METASTATIC MALIGNANT MELANOMA
     Dosage: ACTION TAKEN: DRUG WITHDRAWN
     Route: 048
     Dates: start: 20190124, end: 20190204
  2. VEMURAFENIB. [Suspect]
     Active Substance: VEMURAFENIB
     Indication: METASTATIC MALIGNANT MELANOMA
     Dosage: ACTION TAKEN: DRUG WITHDRAWN
     Route: 048
     Dates: start: 20190124, end: 20190204

REACTIONS (3)
  - Delirium [Unknown]
  - Rash [Not Recovered/Not Resolved]
  - Multiple organ dysfunction syndrome [Unknown]

NARRATIVE: CASE EVENT DATE: 20190204
